FAERS Safety Report 9952975 (Version 1)
Quarter: 2014Q1

REPORT INFORMATION
  Report Type: Report from Study
  Country: US (occurrence: US)
  Receive Date: 20140304
  Receipt Date: 20140304
  Transmission Date: 20141002
  Serious: No
  Sender: FDA-Public Use
  Company Number: US-ABBVIE-13P-163-1078585-00

PATIENT
  Age: 59 Year
  Sex: Male
  Weight: 65.38 kg

DRUGS (4)
  1. HUMIRA [Suspect]
     Indication: PSORIASIS
     Route: 058
     Dates: start: 20121104, end: 20121104
  2. HUMIRA [Suspect]
     Route: 058
     Dates: start: 20121111
  3. UNKNOWN MEDICATION [Concomitant]
     Indication: HYPERTENSION
     Route: 048
  4. CELEBREX [Concomitant]
     Indication: BACK PAIN
     Route: 048

REACTIONS (1)
  - Psoriasis [Not Recovered/Not Resolved]
